FAERS Safety Report 12883572 (Version 1)
Quarter: 2016Q4

REPORT INFORMATION
  Report Type: Report from Study
  Country: US (occurrence: US)
  Receive Date: 20161025
  Receipt Date: 20161025
  Transmission Date: 20170207
  Serious: Yes (Hospitalization)
  Sender: FDA-Public Use
  Company Number: US-PROMETHEUS LABORATORIES-2016PL000070

PATIENT
  Age: 43 Year
  Sex: Male

DRUGS (18)
  1. MULTIVITAMIN                       /00097801/ [Concomitant]
     Active Substance: VITAMINS
     Dosage: UNK UNK, DAILY
     Route: 048
  2. PREDNISONE. [Concomitant]
     Active Substance: PREDNISONE
     Dosage: 2.5 MG, DAILY
     Route: 048
  3. PROLEUKIN [Suspect]
     Active Substance: ALDESLEUKIN
     Indication: GRAFT VERSUS HOST DISEASE
     Dosage: 2.5 MILLION IU, DAILY
     Route: 058
     Dates: start: 20151222, end: 20160927
  4. ZOVIRAX [Concomitant]
     Active Substance: ACYCLOVIR
     Dosage: 400 MG, 3 TIMES DAILY
     Route: 048
  5. TEMOVATE [Concomitant]
     Active Substance: CLOBETASOL PROPIONATE
     Dosage: 0.05 UNK, TWICE DAILY
  6. ATIVAN [Concomitant]
     Active Substance: LORAZEPAM
     Dosage: 1 MG, EVERY 6 HRS PRN
     Route: 048
  7. CALCIUM CARBONATE. [Concomitant]
     Active Substance: CALCIUM CARBONATE
     Dosage: 600 UNK, 3 TIMES DAILY
     Route: 048
  8. SULFAMETHOXAZOLE [Concomitant]
     Active Substance: SULFAMETHOXAZOLE
     Dosage: 400 UNK, UNK
     Route: 048
  9. TRIMETHOPRIM. [Concomitant]
     Active Substance: TRIMETHOPRIM
     Dosage: 80 MG, DAILY
     Route: 048
  10. MARINOL [Concomitant]
     Active Substance: DRONABINOL
     Dosage: 5 MG, TWICE DAILY
     Route: 048
  11. IBUPROFEN. [Concomitant]
     Active Substance: IBUPROFEN
     Dosage: 200 MG, TWICE DAILY
     Route: 048
  12. MAG-OX [Concomitant]
     Active Substance: MAGNESIUM OXIDE
     Dosage: 240 MG, TWICE DAILY
  13. REFRESH TEARS LUBRICANT [Concomitant]
     Active Substance: CARBOXYMETHYLCELLULOSE SODIUM
     Dosage: 1 DROPS, 3 TIMES DAILY
  14. CHOLECALCIFEROL SANDOZ [Concomitant]
     Dosage: 2000 UNK, DAILY
     Route: 048
  15. CELLCEPT [Concomitant]
     Active Substance: MYCOPHENOLATE MOFETIL\MYCOPHENOLATE MOFETIL HYDROCHLORIDE
     Dosage: 500 MG, TWICE DAILY
  16. PRILOSEC [Concomitant]
     Active Substance: OMEPRAZOLE MAGNESIUM
     Dosage: 20 MG, DAILY
     Route: 048
  17. QUALAQUIN [Concomitant]
     Active Substance: QUININE SULFATE
     Dosage: 324 MG, EVERY 8 HOURS
     Route: 048
  18. ASPIRIN                            /00002701/ [Concomitant]
     Active Substance: ASPIRIN
     Indication: PHOTOPHERESIS
     Dosage: 81 MG, WEEKLY
     Route: 048

REACTIONS (2)
  - Eosinophilia [Unknown]
  - Peripheral ischaemia [Recovering/Resolving]

NARRATIVE: CASE EVENT DATE: 20160928
